FAERS Safety Report 10232508 (Version 3)
Quarter: 2017Q1

REPORT INFORMATION
  Report Type: Spontaneous
  Country: US (occurrence: US)
  Receive Date: 20140612
  Receipt Date: 20170322
  Transmission Date: 20170428
  Serious: Yes (Other)
  Sender: FDA-Public Use
  Company Number: US-JNJFOC-20140606622

PATIENT
  Sex: Male

DRUGS (1)
  1. RISPERDAL [Suspect]
     Active Substance: RISPERIDONE
     Indication: HALLUCINATION, AUDITORY
     Route: 048
     Dates: start: 1997

REACTIONS (4)
  - Gynaecomastia [Unknown]
  - Adverse drug reaction [Unknown]
  - Tardive dyskinesia [Unknown]
  - Injury [Unknown]

NARRATIVE: CASE EVENT DATE: 1997
